FAERS Safety Report 5376075-2 (Version None)
Quarter: 2007Q3

REPORT INFORMATION
  Report Type: 
  Country: None (occurrence: None)
  Receive Date: 20070702
  Receipt Date: 20070625
  Transmission Date: 20080115
  Serious: Yes (Hospitalization)
  Sender: FDA-Public Use
  Company Number: FR-SOLVAY-00207032938

PATIENT
  Age: 83 Year
  Sex: Female

DRUGS (6)
  1. PERINDOPRIL ERBUMINE [Suspect]
     Indication: ILL-DEFINED DISORDER
     Dosage: DAILY DOSE: 1 MILLIGRAM(S)
     Route: 048
     Dates: start: 20070315, end: 20070521
  2. CARDENSIEL [Concomitant]
     Indication: ILL-DEFINED DISORDER
     Dosage: DAILY DOSE:  UNKNOWN
     Route: 065
  3. ALDACTONE [Interacting]
     Indication: ILL-DEFINED DISORDER
     Dosage: DAILY DOSE: 12.5 MILLIGRAM(S)
     Route: 048
     Dates: start: 20070518, end: 20070521
  4. COUMADIN [Concomitant]
     Indication: ILL-DEFINED DISORDER
     Dosage: DAILY DOSE:  UNKNOWN
     Route: 065
  5. POTASSIUM CHLORIDE [Interacting]
     Indication: ILL-DEFINED DISORDER
     Dosage: DAILY DOSE: 4 DOSAGE FORM
     Route: 048
     Dates: start: 20070315
  6. CORDARONE [Concomitant]
     Indication: ILL-DEFINED DISORDER
     Dosage: DAILY DOSE:  UNKNOWN
     Route: 065

REACTIONS (4)
  - ACUTE PULMONARY OEDEMA [None]
  - CHEST PAIN [None]
  - DRUG INTERACTION [None]
  - HYPERKALAEMIA [None]
